FAERS Safety Report 5089670-5 (Version None)
Quarter: 2006Q3

REPORT INFORMATION
  Report Type: 
  Country: None (occurrence: None)
  Receive Date: 20060828
  Receipt Date: 20060621
  Transmission Date: 20061208
  Serious: Yes (Other)
  Sender: FDA-Public Use
  Company Number: JP-SP-2006-01557

PATIENT
  Age: 65 Year
  Sex: Male

DRUGS (6)
  1. IMMUCYST [Suspect]
     Indication: BLADDER CANCER
     Route: 043
     Dates: start: 20060421, end: 20060506
  2. AMLODIPINE BESYLATE [Concomitant]
     Route: 048
  3. VALSARTAN [Concomitant]
     Route: 048
  4. PRAZOSIN HCL [Concomitant]
     Route: 048
  5. ATENOLOL [Concomitant]
     Route: 048
  6. BEZAFIBRATE [Concomitant]
     Route: 048

REACTIONS (5)
  - PROSTATIC ABSCESS [None]
  - PROSTATITIS [None]
  - PYREXIA [None]
  - PYURIA [None]
  - URINARY RETENTION [None]
